FAERS Safety Report 23481746 (Version 1)
Quarter: 2024Q1

REPORT INFORMATION
  Report Type: Spontaneous
  Country: US (occurrence: US)
  Receive Date: 20240205
  Receipt Date: 20240205
  Transmission Date: 20240410
  Serious: No
  Sender: FDA-Public Use
  Company Number: US-009507513-2402USA000598

PATIENT
  Age: 56 Year
  Sex: Male

DRUGS (1)
  1. VERQUVO [Suspect]
     Active Substance: VERICIGUAT
     Dosage: DAILY
     Route: 048

REACTIONS (2)
  - Abdominal pain [Recovered/Resolved]
  - Back pain [Recovered/Resolved]
